FAERS Safety Report 18036231 (Version 2)
Quarter: 2020Q4

REPORT INFORMATION
  Report Type: Spontaneous
  Country: ES (occurrence: ES)
  Receive Date: 20200717
  Receipt Date: 20201002
  Transmission Date: 20210113
  Serious: Yes (Other)
  Sender: FDA-Public Use
  Company Number: ES-ALEXION PHARMACEUTICALS INC-A202007731

PATIENT
  Age: 27 Year
  Sex: Female
  Weight: 85 kg

DRUGS (3)
  1. SOLIRIS [Suspect]
     Active Substance: ECULIZUMAB
     Indication: ATYPICAL HAEMOLYTIC URAEMIC SYNDROME
     Dosage: 900 MG, QW
     Route: 042
     Dates: start: 20200522, end: 20200619
  2. SOLIRIS [Suspect]
     Active Substance: ECULIZUMAB
     Dosage: 1200 MG, Q2W
     Route: 042
     Dates: start: 20200619
  3. CEFTRIAXONE. [Concomitant]
     Active Substance: CEFTRIAXONE
     Indication: PRODUCT USED FOR UNKNOWN INDICATION
     Dosage: UNK
     Route: 065

REACTIONS (12)
  - Pituitary tumour benign [Unknown]
  - Breast discharge [Recovered/Resolved]
  - Weight increased [Unknown]
  - Nausea [Recovered/Resolved]
  - Hypertension [Recovered/Resolved]
  - Fluid retention [Unknown]
  - Haemoglobin decreased [Recovered/Resolved]
  - Blood prolactin increased [Unknown]
  - Drug ineffective [Unknown]
  - Renal failure [Recovering/Resolving]
  - Prolactin-producing pituitary tumour [Unknown]
  - Oliguria [Recovering/Resolving]

NARRATIVE: CASE EVENT DATE: 20200522
